FAERS Safety Report 15077048 (Version 2)
Quarter: 2018Q2

REPORT INFORMATION
  Report Type: Spontaneous
  Country: US (occurrence: US)
  Receive Date: 20180627
  Receipt Date: 20180629
  Transmission Date: 20180711
  Serious: No
  Sender: FDA-Public Use
  Company Number: US-PFIZER INC-2018260337

PATIENT
  Age: 61 Year
  Sex: Female
  Weight: 61.68 kg

DRUGS (9)
  1. LYRICA [Suspect]
     Active Substance: PREGABALIN
     Indication: FIBROMYALGIA
     Dosage: 300 MG, DAILY (ONE TABLET IN MORNING AND TWO AT NIGHT)
     Route: 048
     Dates: end: 201806
  2. LYRICA [Suspect]
     Active Substance: PREGABALIN
     Indication: TREMOR
  3. LOVASTATIN. [Concomitant]
     Active Substance: LOVASTATIN
     Indication: BLOOD CHOLESTEROL ABNORMAL
     Dosage: 40 MG, 1X/DAY(AT BEDTIME)
  4. SOMA [Concomitant]
     Active Substance: CARISOPRODOL
     Dosage: 1 DF, 2X/DAY (AS NEEDED)
     Route: 048
  5. VALSARTAN HCTZ [Concomitant]
     Active Substance: HYDROCHLOROTHIAZIDE\VALSARTAN
     Indication: BLOOD PRESSURE ABNORMAL
     Dosage: UNK, 1X/DAY [VALSARTAN: 160MG/HYDROCHLOROTHIAZIDE: 25MG]
  6. LYRICA [Suspect]
     Active Substance: PREGABALIN
     Indication: NERVE INJURY
  7. HYDROCODONE [Concomitant]
     Active Substance: HYDROCODONE
     Indication: PAIN
     Dosage: 1000 MG, 2X/DAY
     Route: 048
  8. LYRICA [Suspect]
     Active Substance: PREGABALIN
     Indication: RESTLESS LEGS SYNDROME
  9. XANAX [Concomitant]
     Active Substance: ALPRAZOLAM
     Indication: NEURALGIA
     Dosage: 100 MG, 2X/DAY
     Route: 048

REACTIONS (4)
  - Feeling abnormal [Unknown]
  - Tremor [Not Recovered/Not Resolved]
  - Memory impairment [Recovering/Resolving]
  - Condition aggravated [Not Recovered/Not Resolved]
